FAERS Safety Report 10178466 (Version 1)
Quarter: 2014Q2

REPORT INFORMATION
  Report Type: Spontaneous
  Country: US (occurrence: None)
  Receive Date: 20140516
  Receipt Date: 20140516
  Transmission Date: 20141212
  Serious: Yes (Other)
  Sender: FDA-Public Use
  Company Number: None

PATIENT
  Age: 43 Year
  Sex: Male
  Weight: 120.2 kg

DRUGS (2)
  1. WELLBUTRIN XL [Suspect]
     Indication: DEPRESSION
     Dosage: TAKEN BY MOUTH
     Route: 048
     Dates: start: 20140301, end: 20140401
  2. DEXILANT [Concomitant]

REACTIONS (4)
  - Nausea [None]
  - Product substitution issue [None]
  - Product substitution issue [None]
  - Product odour abnormal [None]
